FAERS Safety Report 7559057-1 (Version None)
Quarter: 2011Q2

REPORT INFORMATION
  Report Type: 
  Country: None (occurrence: None)
  Receive Date: 20110525
  Receipt Date: 20110405
  Transmission Date: 20111010
  Serious: No
  Sender: FDA-Public Use
  Company Number: 325336

PATIENT
  Age: 50 Year
  Sex: Female

DRUGS (2)
  1. ANTIBIOTICS [Suspect]
     Indication: PELVIC ABSCESS
     Dosage: INTRAVENOUS
     Route: 042
  2. VICTOZA [Suspect]
     Indication: TYPE 2 DIABETES MELLITUS
     Dosage: SUBCUTANEOUS
     Route: 058

REACTIONS (4)
  - ABDOMINAL PAIN [None]
  - DYSPHONIA [None]
  - NAUSEA [None]
  - DIARRHOEA [None]
